FAERS Safety Report 9366251 (Version 1)
Quarter: 2013Q2

REPORT INFORMATION
  Report Type: Spontaneous
  Country: US (occurrence: None)
  Receive Date: 20130620
  Receipt Date: 20130620
  Transmission Date: 20140414
  Serious: Yes (Hospitalization)
  Sender: FDA-Public Use
  Company Number: 2013AP006081

PATIENT
  Age: 20 Year
  Sex: Male

DRUGS (4)
  1. GABAPENTIN [Suspect]
     Indication: DRUG ABUSE
  2. OXYCODONE [Suspect]
     Indication: DRUG ABUSE
  3. ALCOHOL [Suspect]
  4. COCAINE [Suspect]

REACTIONS (6)
  - Somnolence [None]
  - Coma [None]
  - Hypotension [None]
  - Myoclonus [None]
  - Hyperreflexia [None]
  - Drug abuse [None]
